FAERS Safety Report 22850638 (Version 4)
Quarter: 2023Q4

REPORT INFORMATION
  Report Type: Spontaneous
  Country: US (occurrence: US)
  Receive Date: 20230822
  Receipt Date: 20231108
  Transmission Date: 20240109
  Serious: No
  Sender: FDA-Public Use
  Company Number: US-PFIZER INC-PV202300141268

PATIENT
  Age: 1 Month
  Sex: Male

DRUGS (1)
  1. GENOTROPIN [Suspect]
     Active Substance: SOMATROPIN
     Dosage: 0.8MG DAILY

REACTIONS (5)
  - Product solubility abnormal [Unknown]
  - Incorrect dose administered by device [Unknown]
  - Accidental overdose [Unknown]
  - Device delivery system issue [Unknown]
  - Device information output issue [Unknown]
